FAERS Safety Report 19499621 (Version 2)
Quarter: 2021Q3

REPORT INFORMATION
  Report Type: Spontaneous
  Country: US (occurrence: US)
  Receive Date: 20210706
  Receipt Date: 20210714
  Transmission Date: 20211014
  Serious: Yes (Hospitalization, Other)
  Sender: FDA-Public Use
  Company Number: US-EVOKE PHARMA, INC.-2021EVO000062

PATIENT

DRUGS (1)
  1. GIMOTI [Suspect]
     Active Substance: METOCLOPRAMIDE HYDROCHLORIDE
     Indication: IMPAIRED GASTRIC EMPTYING
     Dosage: ONE SPRAY IN ONE NOSTRIL 30MINUTES BEFORE EACH MEAL, TID
     Route: 045

REACTIONS (6)
  - Nausea [Unknown]
  - Vomiting [Unknown]
  - Procedural pain [Unknown]
  - Hiatus hernia [Unknown]
  - Gastric disorder [Unknown]
  - Incision site impaired healing [Not Recovered/Not Resolved]

NARRATIVE: CASE EVENT DATE: 2021
